FAERS Safety Report 25082608 (Version 1)
Quarter: 2025Q1

REPORT INFORMATION
  Report Type: Spontaneous
  Country: AT (occurrence: AT)
  Receive Date: 20250317
  Receipt Date: 20250317
  Transmission Date: 20250409
  Serious: Yes (Hospitalization, Other)
  Sender: GENMAB
  Company Number: AT-ABBVIE-6169695

PATIENT
  Age: 81 Year
  Sex: Female

DRUGS (6)
  1. EPCORITAMAB [Suspect]
     Active Substance: EPCORITAMAB
     Indication: Diffuse large B-cell lymphoma
     Route: 058
     Dates: start: 20240829
  2. EPCORITAMAB [Suspect]
     Active Substance: EPCORITAMAB
     Route: 058
     Dates: start: 20240904
  3. EPCORITAMAB [Suspect]
     Active Substance: EPCORITAMAB
     Route: 058
     Dates: start: 20240911
  4. EPCORITAMAB [Suspect]
     Active Substance: EPCORITAMAB
     Route: 058
     Dates: start: 20240925
  5. CEFEPIME HYDROCHLORIDE [Concomitant]
     Active Substance: CEFEPIME HYDROCHLORIDE
     Indication: Product used for unknown indication
     Route: 065
  6. DEXAMETHASONE ACETATE [Concomitant]
     Active Substance: DEXAMETHASONE ACETATE
     Indication: Product used for unknown indication
     Route: 065
     Dates: start: 20240919

REACTIONS (10)
  - Adverse drug reaction [Unknown]
  - Infection [Unknown]
  - Nasal congestion [Recovering/Resolving]
  - General physical health deterioration [Unknown]
  - Deafness [Recovering/Resolving]
  - Tumour pseudoprogression [Recovered/Resolved]
  - Fatigue [Unknown]
  - Pyrexia [Unknown]
  - Swelling [Unknown]
  - Pain [Unknown]
